FAERS Safety Report 8232854-5 (Version None)
Quarter: 2012Q1

REPORT INFORMATION
  Report Type: 
  Country: None (occurrence: None)
  Receive Date: 20120324
  Receipt Date: 20120314
  Transmission Date: 20120608
  Serious: Yes (Hospitalization)
  Sender: FDA-Public Use
  Company Number: BR-AMGEN-BRASP2012017377

PATIENT
  Age: 56 Year
  Sex: Female
  Weight: 76 kg

DRUGS (4)
  1. FERROUS SULFATE TAB [Concomitant]
     Dosage: UNK
  2. LOSARTAN POTASSIUM [Concomitant]
     Dosage: 50 MG, UNK
  3. TYLEX                              /00547501/ [Concomitant]
     Dosage: UNK
  4. ENBREL [Suspect]
     Indication: RHEUMATOID ARTHRITIS
     Dosage: 50 MG, 1X/WEEK
     Route: 058
     Dates: start: 20110401, end: 20110501

REACTIONS (2)
  - ASTHENIA [None]
  - ANAEMIA [None]
